FAERS Safety Report 6127893-4 (Version None)
Quarter: 2009Q1

REPORT INFORMATION
  Report Type: 
  Country: None (occurrence: None)
  Receive Date: 20090323
  Receipt Date: 20090312
  Transmission Date: 20090719
  Serious: Yes (Hospitalization)
  Sender: FDA-Public Use
  Company Number: FR-AVENTIS-200911016FR

PATIENT
  Age: 81 Year
  Sex: Male

DRUGS (3)
  1. RIFADIN [Suspect]
     Indication: OSTEITIS
     Route: 048
     Dates: start: 20081201, end: 20081222
  2. FUCIDINE                           /00065702/ [Suspect]
     Indication: OSTEITIS
     Dates: start: 20081201, end: 20081222
  3. ARIXTRA [Suspect]
     Indication: DRUG USE FOR UNKNOWN INDICATION
     Route: 058
     Dates: start: 20081212, end: 20090201

REACTIONS (2)
  - ACUTE PULMONARY OEDEMA [None]
  - GENERALISED OEDEMA [None]
